FAERS Safety Report 5122587-6 (Version None)
Quarter: 2006Q4

REPORT INFORMATION
  Report Type: 
  Country: None (occurrence: None)
  Receive Date: 20061004
  Receipt Date: 20060922
  Transmission Date: 20070319
  Serious: Yes (Disabling)
  Sender: FDA-Public Use
  Company Number: 2006BH013398

PATIENT
  Age: 40 Year
  Sex: Male

DRUGS (2)
  1. HYDROCORTISONE [Suspect]
     Indication: DRUG USE FOR UNKNOWN INDICATION
     Dosage: 125 MG; ONCE; ED
     Route: 008
     Dates: start: 20050701, end: 20050701
  2. LIDOCAINE [Concomitant]

REACTIONS (6)
  - NUCLEAR MAGNETIC RESONANCE IMAGING ABNORMAL [None]
  - PAIN IN EXTREMITY [None]
  - PARAPLEGIA [None]
  - REFUSAL OF TREATMENT BY PATIENT [None]
  - URINARY INCONTINENCE [None]
  - URINARY RETENTION [None]
